FAERS Safety Report 26012758 (Version 1)
Quarter: 2025Q4

REPORT INFORMATION
  Report Type: Spontaneous
  Country: IN (occurrence: IN)
  Receive Date: 20251107
  Receipt Date: 20251107
  Transmission Date: 20260118
  Serious: Yes (Life-Threatening, Other)
  Sender: ASTELLAS
  Company Number: IN-GILEAD-2025-0735480

PATIENT
  Age: 6 Decade
  Sex: Male

DRUGS (1)
  1. AMPHOTERICIN B [Suspect]
     Active Substance: AMPHOTERICIN B
     Indication: Visceral leishmaniasis
     Dosage: SINGLE DOSE OF 10 MG/KG
     Route: 065

REACTIONS (1)
  - Cerebral haemorrhage [Recovering/Resolving]
